FAERS Safety Report 5333167-1 (Version None)
Quarter: 2007Q2

REPORT INFORMATION
  Report Type: 
  Country: None (occurrence: None)
  Receive Date: 20070524
  Receipt Date: 20070516
  Transmission Date: 20071010
  Serious: Yes (Hospitalization, Disabling)
  Sender: FDA-Public Use
  Company Number: PHEH2007US05414

PATIENT
  Age: 56 Year
  Sex: Female
  Weight: 114.74 kg

DRUGS (28)
  1. ZELNORM [Suspect]
     Indication: CONSTIPATION
     Dosage: 6 MG, BID
     Route: 048
     Dates: start: 20050101, end: 20070410
  2. VALIUM [Concomitant]
     Indication: BIPOLAR DISORDER
     Dosage: 0.5 MG, UNK
     Dates: start: 19770101
  3. PROZAC [Concomitant]
     Indication: BIPOLAR DISORDER
     Dosage: 20 MG QD
     Route: 048
  4. ABILIFY [Concomitant]
     Indication: BIPOLAR DISORDER
     Dosage: 10MG,
     Route: 048
  5. OXYTROL [Concomitant]
     Indication: URINARY INCONTINENCE
     Route: 048
  6. KLOR-CON [Concomitant]
     Indication: ELECTROLYTE SUBSTITUTION THERAPY
     Dosage: 20 MG, QD
     Route: 048
  7. LASIX [Concomitant]
     Indication: OEDEMA
     Dosage: 10 MG, QOD
     Route: 048
  8. SYNTHROID [Concomitant]
     Indication: HYPOTHYROIDISM
     Dosage: .05 MG QD
     Route: 048
     Dates: start: 19990101
  9. ULTRAM [Concomitant]
     Indication: ARTHRALGIA
     Route: 048
  10. ASPIRIN [Concomitant]
     Indication: CARDIOVASCULAR EVENT PROPHYLAXIS
     Dosage: 81 MG, QD
     Route: 048
  11. QUININE SULFATE [Concomitant]
     Dosage: 325 MG, UNK
  12. VITAMIN B6 [Concomitant]
     Dosage: 100 MG, QD
     Route: 048
  13. VITAMIN B-12 [Concomitant]
     Dosage: 100 MEQ, QD
     Route: 048
  14. VITAMIN B-12 [Concomitant]
     Dosage: 1000 MEQ/ML, QMO
  15. CALCIUM CHLORIDE [Concomitant]
     Indication: SUPPLEMENTATION THERAPY
     Dosage: 600 MG, BID
     Route: 048
  16. CHROMIUM [Concomitant]
     Indication: SUPPLEMENTATION THERAPY
     Dosage: 200 MEQ, QD
     Route: 048
  17. STOOL SOFTENER [Concomitant]
     Indication: CONSTIPATION
     Dosage: UNK, PRN
     Route: 048
     Dates: start: 20060101
  18. FIBERCON [Concomitant]
     Indication: CONSTIPATION
     Dosage: UNK, PRN
     Route: 048
     Dates: start: 20060101
  19. VITAMIN CAP [Concomitant]
     Indication: SUPPLEMENTATION THERAPY
     Dosage: UNK, QD
     Route: 048
  20. CELEBREX [Concomitant]
     Dosage: 200 MG, BID
     Route: 048
  21. NIACIN [Concomitant]
     Dosage: 100 MG, QD
     Route: 048
  22. OXYBUTYNIN CHLORIDE [Concomitant]
     Dosage: UNK, QD
     Route: 062
  23. POTASSIUM CHLORIDE [Concomitant]
     Dosage: 10 MEQ/100 ML, QOD
  24. RESTASIS [Concomitant]
     Dosage: 0.05 %, QD AS DIRECTED
  25. SKELAXIN [Concomitant]
     Dosage: 400 MG, TID
     Route: 048
  26. TRAZODONE HCL [Concomitant]
     Dosage: 100 MG, Q6H
     Route: 048
  27. VAGIFEM [Concomitant]
     Dosage: 25 MEQ, QD
     Route: 048
  28. ZONEGRAN [Concomitant]
     Dosage: 100 MG, BID
     Route: 048

REACTIONS (10)
  - AMNESIA [None]
  - CARPAL TUNNEL SYNDROME [None]
  - CEREBROVASCULAR ACCIDENT [None]
  - CONFUSIONAL STATE [None]
  - DISORIENTATION [None]
  - ELECTROCARDIOGRAM [None]
  - HYPOAESTHESIA [None]
  - MIGRAINE [None]
  - PARAESTHESIA [None]
  - SCAN BRAIN [None]
